FAERS Safety Report 15701376 (Version 1)
Quarter: 2018Q4

REPORT INFORMATION
  Report Type: Spontaneous
  Country: FR (occurrence: FR)
  Receive Date: 20181207
  Receipt Date: 20181207
  Transmission Date: 20190205
  Serious: Yes (Hospitalization)
  Sender: FDA-Public Use
  Company Number: FR-TEVA-2018-FR-983383

PATIENT
  Age: 17 Year
  Sex: Male
  Weight: 82 kg

DRUGS (11)
  1. PARACETAMOL [Suspect]
     Active Substance: ACETAMINOPHEN
     Indication: SUICIDE ATTEMPT
     Route: 048
     Dates: start: 20180701, end: 20180701
  2. SERESTA 10 MG, COMPRIM? [Suspect]
     Active Substance: OXAZEPAM
     Indication: SUICIDE ATTEMPT
     Route: 048
     Dates: start: 20180701, end: 20180701
  3. AUGMENTIN [Suspect]
     Active Substance: AMOXICILLIN\CLAVULANATE POTASSIUM
     Indication: SUICIDE ATTEMPT
     Route: 048
     Dates: start: 20180701, end: 20180701
  4. CEFPODOXIME [Suspect]
     Active Substance: CEFPODOXIME
     Indication: SUICIDE ATTEMPT
     Route: 048
     Dates: start: 20180701, end: 20180701
  5. ESCITALOPRAM [Suspect]
     Active Substance: ESCITALOPRAM OXALATE
     Indication: SUICIDE ATTEMPT
     Dosage: 140 MILLIGRAM DAILY;
     Route: 048
     Dates: start: 20180701, end: 20180701
  6. ARESTAL 1 MG, COMPRIM? [Suspect]
     Active Substance: LOPERAMIDE OXIDE
     Indication: SUICIDE ATTEMPT
     Route: 048
     Dates: start: 20180701, end: 20180701
  7. AZITHROMYCINE ANHYDRE [Suspect]
     Active Substance: AZITHROMYCIN ANHYDROUS
     Indication: SUICIDE ATTEMPT
     Route: 048
     Dates: start: 20180701, end: 20180701
  8. TRIMEBUTINE [Suspect]
     Active Substance: TRIMEBUTINE
     Indication: SUICIDE ATTEMPT
     Route: 048
     Dates: start: 20180701, end: 20180701
  9. PREDNISOLONE. [Suspect]
     Active Substance: PREDNISOLONE
     Indication: SUICIDE ATTEMPT
     Route: 048
     Dates: start: 20180701, end: 20180701
  10. HEPATOUM, SOLUTION BUVABLE [Suspect]
     Active Substance: DIETARY SUPPLEMENT\HERBALS
     Indication: SUICIDE ATTEMPT
     Dosage: NOT INFORMED
     Route: 048
     Dates: start: 20180701, end: 20180701
  11. INORIAL 20 MG, COMPRIM? [Suspect]
     Active Substance: BILASTINE
     Indication: SUICIDE ATTEMPT
     Route: 048
     Dates: start: 20180701, end: 20180701

REACTIONS (5)
  - Mydriasis [Recovered/Resolved]
  - Malaise [Recovered/Resolved]
  - Vomiting [Recovered/Resolved]
  - Somnolence [Recovered/Resolved]
  - Toxicity to various agents [Recovered/Resolved]

NARRATIVE: CASE EVENT DATE: 20180701
